FAERS Safety Report 14278249 (Version 2)
Quarter: 2018Q1

REPORT INFORMATION
  Report Type: Spontaneous
  Country: US (occurrence: US)
  Receive Date: 20171212
  Receipt Date: 20180111
  Transmission Date: 20180508
  Serious: No
  Sender: FDA-Public Use
  Company Number: US-PFIZER INC-2017528718

PATIENT
  Age: 46 Year
  Sex: Male

DRUGS (2)
  1. LYRICA [Suspect]
     Active Substance: PREGABALIN
     Indication: ANXIETY
     Dosage: 25 MG, 3X/DAY
     Dates: start: 201712
  2. LYRICA [Suspect]
     Active Substance: PREGABALIN
     Indication: RESTLESSNESS
     Dosage: 50 MG, UNK

REACTIONS (4)
  - Somnolence [Recovered/Resolved]
  - Withdrawal syndrome [Unknown]
  - Muscle spasms [Unknown]
  - Product use in unapproved indication [Unknown]
